FAERS Safety Report 19559899 (Version 2)
Quarter: 2021Q3

REPORT INFORMATION
  Report Type: Spontaneous
  Country: US (occurrence: US)
  Receive Date: 20210716
  Receipt Date: 20210812
  Transmission Date: 20211014
  Serious: Yes (Death, Life-Threatening, Hospitalization, Other)
  Sender: FDA-Public Use
  Company Number: US-UNITED THERAPEUTICS-UNT-2021-012888

PATIENT
  Age: 66 Year
  Sex: Female

DRUGS (2)
  1. REMODULIN [Suspect]
     Active Substance: TREPROSTINIL
     Indication: PULMONARY ARTERIAL HYPERTENSION
     Dosage: UNK, CONTINUING
     Route: 041
     Dates: start: 20210121
  2. REMODULIN [Suspect]
     Active Substance: TREPROSTINIL
     Dosage: 0.1 ?G/KG, CONTINUING
     Route: 041
     Dates: start: 2021

REACTIONS (3)
  - Acute respiratory failure [Fatal]
  - Multiple organ dysfunction syndrome [Fatal]
  - Renal failure [Fatal]

NARRATIVE: CASE EVENT DATE: 20210707
